FAERS Safety Report 25999901 (Version 1)
Quarter: 2025Q4

REPORT INFORMATION
  Report Type: Report from Study
  Country: US (occurrence: None)
  Receive Date: 20251105
  Receipt Date: 20251105
  Transmission Date: 20260117
  Serious: Yes (Hospitalization, Other)
  Sender: UCB
  Company Number: US-UCBSA-2025068825

PATIENT

DRUGS (3)
  1. LEVETIRACETAM [Suspect]
     Active Substance: LEVETIRACETAM
     Indication: Epilepsy
     Dosage: 750MG - 2 PILLS IN THE MORNING AND 3 PILLS IN THE EVENING
  2. LEVETIRACETAM [Suspect]
     Active Substance: LEVETIRACETAM
     Dosage: 750MG - 2 PILLS IN THE MORNING AND 3 PILLS IN THE EVENING
  3. KEPPRA [Suspect]
     Active Substance: LEVETIRACETAM
     Indication: Epilepsy of infancy with migrating focal seizures
     Dosage: UNK, FOR 1 WEEK

REACTIONS (3)
  - Diverticulitis [Unknown]
  - Surgery [Unknown]
  - Product use issue [Unknown]
